FAERS Safety Report 5777096-8 (Version None)
Quarter: 2008Q2

REPORT INFORMATION
  Report Type: 
  Country: None (occurrence: None)
  Receive Date: 20080617
  Receipt Date: 20080617
  Transmission Date: 20081010
  Serious: Yes (Life-Threatening)
  Sender: FDA-Public Use
  Company Number: None

PATIENT
  Age: 44 Year
  Sex: Male
  Weight: 132.7 kg

DRUGS (7)
  1. HYDROMORPHONE HCL [Suspect]
     Indication: PAIN
     Dosage: 0.8 MG IV IN 15 MIN
     Route: 042
     Dates: start: 20080510
  2. HYDROMORPHONE HCL [Suspect]
     Dosage: PCA 0.2/0.4/10
     Dates: start: 20080510
  3. METRONIDAZOLE HCL [Concomitant]
  4. CEFAZOLIN [Concomitant]
  5. HEP SQ [Concomitant]
  6. INSULIN DRIP [Concomitant]
  7. RANITIDINE HCL [Concomitant]

REACTIONS (1)
  - LOSS OF CONSCIOUSNESS [None]
